FAERS Safety Report 25315606 (Version 2)
Quarter: 2025Q3

REPORT INFORMATION
  Report Type: Spontaneous
  Country: EU (occurrence: EU)
  Receive Date: 20250514
  Receipt Date: 20250803
  Transmission Date: 20251021
  Serious: Yes (Hospitalization)
  Sender: ALEXION PHARMACEUTICALS
  Company Number: None

PATIENT
  Age: 79 Year
  Sex: Male

DRUGS (9)
  1. DAPAGLIFLOZIN [Suspect]
     Active Substance: DAPAGLIFLOZIN
     Indication: Insulin-requiring type 2 diabetes mellitus
     Dosage: LONG COURS
     Dates: end: 20240911
  2. METFORMIN HYDROCHLORIDE [Suspect]
     Active Substance: METFORMIN HYDROCHLORIDE
     Indication: Insulin-requiring type 2 diabetes mellitus
     Dosage: LONG COURS
     Dates: end: 20240911
  3. JANUVIA [Suspect]
     Active Substance: SITAGLIPTIN PHOSPHATE
     Indication: Insulin-requiring type 2 diabetes mellitus
     Dosage: LONG COURS
     Dates: end: 20240911
  4. FUROSEMIDE [Suspect]
     Active Substance: FUROSEMIDE
     Indication: Cardiac failure
     Dosage: LONG COURS
  5. ELIQUIS [Concomitant]
     Active Substance: APIXABAN
     Route: 065
  6. TELMISARTAN [Concomitant]
     Active Substance: TELMISARTAN
     Route: 065
  7. LERCANIDIPINE HYDROCHLORIDE [Concomitant]
     Active Substance: LERCANIDIPINE HYDROCHLORIDE
     Route: 065
  8. BISOPROLOL [Concomitant]
     Active Substance: BISOPROLOL
     Route: 065
  9. HERBALS\SAW PALMETTO [Concomitant]
     Active Substance: HERBALS\SAW PALMETTO
     Route: 065

REACTIONS (2)
  - Oedema peripheral [Recovered/Resolved]
  - Acute kidney injury [Recovered/Resolved]

NARRATIVE: CASE EVENT DATE: 20240911
